FAERS Safety Report 6436863-8 (Version None)
Quarter: 2009Q4

REPORT INFORMATION
  Report Type: 
  Country: None (occurrence: None)
  Receive Date: 20091111
  Receipt Date: 20091001
  Transmission Date: 20100525
  Serious: No
  Sender: FDA-Public Use
  Company Number: US-ALLERGAN-0913653US

PATIENT
  Age: 83 Year
  Sex: Female

DRUGS (6)
  1. SANCTURA XR [Suspect]
     Indication: URINARY INCONTINENCE
     Dosage: 60 MG, SINGLE
     Route: 048
     Dates: start: 20090930, end: 20090930
  2. METOPROLOL [Suspect]
     Indication: HYPERTENSION
  3. DETROL [Concomitant]
  4. VITAMINS [Concomitant]
  5. LEVOTHROID [Concomitant]
  6. PREMARIN [Concomitant]

REACTIONS (4)
  - CHILLS [None]
  - CONFUSIONAL STATE [None]
  - NERVOUSNESS [None]
  - VISION BLURRED [None]
